FAERS Safety Report 8279295-2 (Version None)
Quarter: 2012Q2

REPORT INFORMATION
  Report Type: 
  Country: None (occurrence: None)
  Receive Date: 20120412
  Receipt Date: 20120327
  Transmission Date: 20120825
  Serious: Yes (Hospitalization)
  Sender: FDA-Public Use
  Company Number: CHPA2012US006018

PATIENT
  Age: 72 Year
  Sex: Female

DRUGS (4)
  1. EXCEDRIN EXTRA STRENGTH TABLETS [Suspect]
     Indication: HEADACHE
     Dosage: 2 DF, TID
     Route: 048
     Dates: end: 20120101
  2. CALCIUM CARBONATE [Concomitant]
     Dosage: UNK, UNK
  3. EXCEDRIN PM CAPLETS [Concomitant]
     Dosage: UNK, ONCE IN A WHILE
  4. MSM [Concomitant]
     Dosage: UNK, UNK

REACTIONS (3)
  - ROAD TRAFFIC ACCIDENT [None]
  - INCORRECT DRUG ADMINISTRATION DURATION [None]
  - ARTHRITIS [None]
